FAERS Safety Report 4734823-6 (Version None)
Quarter: 2005Q3

REPORT INFORMATION
  Report Type: 
  Country: None (occurrence: None)
  Receive Date: 20050729
  Receipt Date: 20050719
  Transmission Date: 20060218
  Serious: Yes (Hospitalization, Other)
  Sender: FDA-Public Use
  Company Number: 2005104593

PATIENT
  Sex: Female
  Weight: 102.0593 kg

DRUGS (6)
  1. ZOLOFT [Suspect]
     Indication: DEPRESSION
     Dosage: 50 MG (50 MG, 1 IN 1 D), ORAL
     Route: 048
  2. CELEBREX [Suspect]
     Indication: OSTEOARTHRITIS
     Dosage: 200 MG(200 MG, 1 IN 1 D), ORAL
     Route: 048
  3. ALL OTHER NON-THERAPEUTIC PRODUCTS (ALL OTHER NON-THERAPEUTIC PRODUCTS [Suspect]
     Indication: ILL-DEFINED DISORDER
  4. ACETYLSALICYLIC ACID SRT [Concomitant]
  5. GLUCOSAMINE (GLUCOSAMINE) [Concomitant]
  6. VITAMINS (VITAMINS) [Concomitant]

REACTIONS (12)
  - CONSTIPATION [None]
  - DIARRHOEA [None]
  - DIFFICULTY IN WALKING [None]
  - DRUG EFFECT DECREASED [None]
  - EMPHYSEMA [None]
  - INSOMNIA [None]
  - NON-SMALL CELL LUNG CANCER [None]
  - OSTEOARTHRITIS [None]
  - PAIN [None]
  - PNEUMONIA [None]
  - SMALL CELL LUNG CANCER STAGE UNSPECIFIED [None]
  - TREATMENT NONCOMPLIANCE [None]
